FAERS Safety Report 23424296 (Version 2)
Quarter: 2024Q1

REPORT INFORMATION
  Report Type: Spontaneous
  Country: US (occurrence: US)
  Receive Date: 20240120
  Receipt Date: 20240302
  Transmission Date: 20240410
  Serious: Yes (Hospitalization)
  Sender: FDA-Public Use
  Company Number: US-TEVA-VS-3136306

PATIENT
  Age: 43 Year
  Sex: Male

DRUGS (2)
  1. OLANZAPINE [Suspect]
     Active Substance: OLANZAPINE
     Indication: Bipolar disorder
     Dosage: INITIAL DOSE
     Route: 065
  2. OLANZAPINE [Suspect]
     Active Substance: OLANZAPINE
     Indication: Bipolar disorder
     Dosage: DOSE INCREASED
     Route: 065

REACTIONS (5)
  - Pancreatitis necrotising [Recovering/Resolving]
  - Ketonuria [Recovering/Resolving]
  - Diabetic ketoacidosis [Recovered/Resolved]
  - Type 2 diabetes mellitus [Recovering/Resolving]
  - Metabolic acidosis [Recovering/Resolving]
